FAERS Safety Report 14191711 (Version 2)
Quarter: 2018Q2

REPORT INFORMATION
  Report Type: Spontaneous
  Country: US (occurrence: US)
  Receive Date: 20171115
  Receipt Date: 20180521
  Transmission Date: 20180711
  Serious: No
  Sender: FDA-Public Use
  Company Number: US-BIOGEN-2010BI003585

PATIENT
  Sex: Female

DRUGS (2)
  1. AVONEX [Suspect]
     Active Substance: INTERFERON BETA-1A
     Route: 030
  2. AVONEX [Suspect]
     Active Substance: INTERFERON BETA-1A
     Indication: MULTIPLE SCLEROSIS
     Route: 030
     Dates: start: 20060811, end: 20061001

REACTIONS (5)
  - Visual impairment [Not Recovered/Not Resolved]
  - Dyspnoea [Recovered/Resolved]
  - Amnesia [Recovered/Resolved]
  - Multiple allergies [Recovered/Resolved]
  - Gait disturbance [Not Recovered/Not Resolved]
